FAERS Safety Report 6426217-2 (Version None)
Quarter: 2009Q4

REPORT INFORMATION
  Report Type: 
  Country: None (occurrence: None)
  Receive Date: 20091104
  Receipt Date: 20091027
  Transmission Date: 20100525
  Serious: Yes (Hospitalization)
  Sender: FDA-Public Use
  Company Number: AU-ASTRAZENECA-2009SE16492

PATIENT
  Age: 84 Year
  Sex: Male

DRUGS (8)
  1. NEXIUM [Suspect]
     Indication: GASTROOESOPHAGEAL REFLUX DISEASE
     Route: 048
     Dates: start: 20081215, end: 20090601
  2. NEXIUM [Suspect]
     Indication: DYSPEPSIA
     Route: 048
     Dates: start: 20081215, end: 20090601
  3. ASPIRIN AND DIPYRIDAMOLE [Concomitant]
     Dosage: 200/25 MG DAILY
  4. DIAMICRON [Concomitant]
  5. FLOMAXTRA [Concomitant]
  6. LIPITOR [Concomitant]
  7. COLOXYL SENNA [Concomitant]
     Dosage: DAILY
  8. GINGKO BILOBAR [Concomitant]

REACTIONS (1)
  - TUBULOINTERSTITIAL NEPHRITIS [None]
